FAERS Safety Report 6279661-0 (Version None)
Quarter: 2009Q3

REPORT INFORMATION
  Report Type: 
  Country: None (occurrence: None)
  Receive Date: 20090723
  Receipt Date: 20090717
  Transmission Date: 20100115
  Serious: No
  Sender: FDA-Public Use
  Company Number: US-GILEAD-2009-0020279

PATIENT
  Sex: Female
  Weight: 59.02 kg

DRUGS (19)
  1. LETAIRIS [Suspect]
     Indication: PULMONARY ARTERIAL HYPERTENSION
     Route: 048
     Dates: start: 20081122
  2. OXYGEN [Concomitant]
  3. HYDROCHLOROTHIAZIDE [Concomitant]
  4. LASIX [Concomitant]
  5. BACLOFEN [Concomitant]
  6. TRILEPTAL [Concomitant]
  7. IMITREX [Concomitant]
  8. REMERON [Concomitant]
  9. ANAFRANIL [Concomitant]
  10. PAXIL [Concomitant]
  11. BUSPAR [Concomitant]
  12. AMBIEN [Concomitant]
  13. ATIVAN [Concomitant]
  14. POTASSIUM CHLORIDE [Concomitant]
  15. ESTRA-TESTRIN VILA [Concomitant]
  16. PRILOSEC [Concomitant]
     Route: 048
  17. FLAX SEED OIL [Concomitant]
  18. CALCIUM [Concomitant]
  19. VITAMIN E [Concomitant]

REACTIONS (1)
  - DIZZINESS [None]
